FAERS Safety Report 9711738 (Version 1)
Quarter: 2013Q4

REPORT INFORMATION
  Report Type: Spontaneous
  Country: US (occurrence: US)
  Receive Date: 20131126
  Receipt Date: 20131126
  Transmission Date: 20140711
  Serious: No
  Sender: FDA-Public Use
  Company Number: US-BRISTOL-MYERS SQUIBB COMPANY-18793521

PATIENT
  Age: 56 Year
  Sex: Female

DRUGS (10)
  1. BYDUREON [Suspect]
     Indication: DIABETES MELLITUS
     Dates: start: 201303
  2. LEVEMIR [Concomitant]
  3. APIDRA [Concomitant]
  4. METFORMIN [Concomitant]
  5. ASPIRIN [Concomitant]
  6. SIMVASTATIN [Concomitant]
  7. VITAMIN D [Concomitant]
     Dosage: 1DF:500 UNIT NOS
  8. HYDROCHLOROTHIAZIDE [Concomitant]
  9. ESTRADIOL [Concomitant]
  10. BENAZEPRIL HCL [Concomitant]

REACTIONS (2)
  - Injection site haemorrhage [Recovered/Resolved]
  - Injection site extravasation [Recovered/Resolved]
